FAERS Safety Report 13872652 (Version 1)
Quarter: 2017Q3

REPORT INFORMATION
  Report Type: Spontaneous
  Country: US (occurrence: US)
  Receive Date: 20170816
  Receipt Date: 20170816
  Transmission Date: 20171127
  Serious: No
  Sender: FDA-Public Use
  Company Number: US-PFIZER INC-2017024899

PATIENT
  Sex: Female

DRUGS (1)
  1. IBRANCE [Suspect]
     Active Substance: PALBOCICLIB
     Indication: BREAST CANCER
     Dosage: 125 MG, CYCLIC (1 PO QD FOR 21 DAYS ON AND 7 DAYS OFF; 1 CAPSULE PO DAILY FOR 21 DAYS FOLLOWED BY 7)
     Route: 048
     Dates: start: 20160815

REACTIONS (1)
  - Alopecia [Unknown]
